FAERS Safety Report 12364141 (Version 2)
Quarter: 2016Q2

REPORT INFORMATION
  Report Type: Spontaneous
  Country: US (occurrence: US)
  Receive Date: 20160512
  Receipt Date: 20160516
  Transmission Date: 20160815
  Serious: Yes (Death)
  Sender: FDA-Public Use
  Company Number: PHEH2016US011751

PATIENT
  Sex: Female
  Weight: 70.7 kg

DRUGS (2)
  1. TYKERB [Suspect]
     Active Substance: LAPATINIB DITOSYLATE
     Indication: BREAST CANCER STAGE IV
     Dosage: 1250 MG, QD
     Route: 048
     Dates: start: 20160121
  2. XELODA [Suspect]
     Active Substance: CAPECITABINE
     Indication: BREAST CANCER STAGE IV
     Route: 065

REACTIONS (3)
  - Seizure [Fatal]
  - Breast cancer stage IV [Fatal]
  - Malignant neoplasm progression [Fatal]
